FAERS Safety Report 10102078 (Version 1)
Quarter: 2014Q2

REPORT INFORMATION
  Report Type: Spontaneous
  Country: US (occurrence: None)
  Receive Date: 20140423
  Receipt Date: 20140423
  Transmission Date: 20141212
  Serious: Yes (Hospitalization)
  Sender: FDA-Public Use
  Company Number: None

PATIENT
  Age: 84 Year
  Sex: Male
  Weight: 77 kg

DRUGS (2)
  1. RIVAROXABAN 20 MG JANSSEN [Suspect]
     Indication: ATRIAL FIBRILLATION
     Route: 048
     Dates: end: 20140415
  2. ASPIRIN [Concomitant]

REACTIONS (6)
  - Oesophageal dilatation [None]
  - Oesophageal achalasia [None]
  - Rectal haemorrhage [None]
  - Hypotension [None]
  - Haemoglobin decreased [None]
  - Haematocrit decreased [None]
